FAERS Safety Report 18397820 (Version 1)
Quarter: 2020Q4

REPORT INFORMATION
  Report Type: Spontaneous
  Country: US (occurrence: US)
  Receive Date: 20201019
  Receipt Date: 20201019
  Transmission Date: 20210114
  Serious: No
  Sender: FDA-Public Use
  Company Number: None

PATIENT
  Age: 70 Year
  Sex: Female
  Weight: 70.65 kg

DRUGS (16)
  1. CIPROFLOXACIN. [Suspect]
     Active Substance: CIPROFLOXACIN
     Indication: KIDNEY INFECTION
     Dosage: ?          QUANTITY:2 TABLET(S);?
     Route: 048
  2. VITAIMIN D [Concomitant]
  3. MAGNESIUM [Concomitant]
     Active Substance: MAGNESIUM
  4. BIOTIN [Concomitant]
     Active Substance: BIOTIN
  5. OCUVITE [Concomitant]
     Active Substance: VITAMINS
  6. APPLE CIDER VINEGAR [Concomitant]
     Active Substance: APPLE CIDER VINEGAR
  7. L-LYSINE [Concomitant]
     Active Substance: LYSINE
  8. VITAMIN A [Concomitant]
     Active Substance: VITAMIN A
  9. CIPROFLOXACIN. [Suspect]
     Active Substance: CIPROFLOXACIN
     Indication: CONJUNCTIVITIS
     Dosage: ?          QUANTITY:2 TABLET(S);?
     Route: 048
  10. FISH OIL [Concomitant]
     Active Substance: FISH OIL
  11. PROBIOTIC [Concomitant]
     Active Substance: PROBIOTICS NOS
  12. NASONEX [Concomitant]
     Active Substance: MOMETASONE FUROATE
  13. GLUCOSAMINE/CHONDROITIN [Concomitant]
  14. VITAMIN D3 [Concomitant]
     Active Substance: CHOLECALCIFEROL
  15. ZINC. [Concomitant]
     Active Substance: ZINC
  16. ECINASIA AND GOLDEN SEAL [Concomitant]

REACTIONS (4)
  - Visual impairment [None]
  - Renal pain [None]
  - Dysstasia [None]
  - Back pain [None]

NARRATIVE: CASE EVENT DATE: 20201016
